FAERS Safety Report 4638345-2 (Version None)
Quarter: 2005Q2

REPORT INFORMATION
  Report Type: 
  Country: None (occurrence: None)
  Receive Date: 20050418
  Receipt Date: 20050412
  Transmission Date: 20051028
  Serious: Yes (Disabling)
  Sender: FDA-Public Use
  Company Number: NO-MERCK-0504NOR00015

PATIENT
  Age: 64 Year
  Sex: Female

DRUGS (5)
  1. VIOXX [Suspect]
     Indication: ARTHRITIS
     Route: 048
     Dates: start: 20010928, end: 20040101
  2. AMLODIPINE BESYLATE [Concomitant]
     Indication: HYPERTENSION
     Route: 048
     Dates: start: 20010928, end: 20030501
  3. LERCANIDIPINE HYDROCHLORIDE [Concomitant]
     Indication: HYPERTENSION
     Route: 065
     Dates: start: 20030520
  4. BENDROFLUMETHIAZIDE [Concomitant]
     Indication: HYPERTENSION
     Route: 065
  5. ATORVASTATIN CALCIUM [Concomitant]
     Route: 065
     Dates: start: 20020723

REACTIONS (5)
  - BRAIN DAMAGE [None]
  - DISCOMFORT [None]
  - HYPERTENSION [None]
  - OEDEMA [None]
  - PAIN IN EXTREMITY [None]
